FAERS Safety Report 10231509 (Version 1)
Quarter: 2014Q2

REPORT INFORMATION
  Report Type: Spontaneous
  Country: US (occurrence: US)
  Receive Date: 20140611
  Receipt Date: 20140611
  Transmission Date: 20141212
  Serious: No
  Sender: FDA-Public Use
  Company Number: US-MYLANLABS-2013S1013755

PATIENT
  Age: 64 Year
  Sex: Female

DRUGS (2)
  1. VALACYCLOVIR TABLETS [Suspect]
     Indication: HERPES ZOSTER
     Route: 048
     Dates: start: 20130610, end: 20130611
  2. SUMATRIPTAN [Concomitant]
     Indication: MIGRAINE

REACTIONS (3)
  - Suicidal ideation [Recovered/Resolved]
  - Depression [Recovered/Resolved]
  - Nausea [Recovered/Resolved]
